FAERS Safety Report 8323113-0 (Version None)
Quarter: 2012Q2

REPORT INFORMATION
  Report Type: 
  Country: None (occurrence: None)
  Receive Date: 20120430
  Receipt Date: 20120418
  Transmission Date: 20120825
  Serious: Yes (Other)
  Sender: FDA-Public Use
  Company Number: US-ROCHE-784698

PATIENT
  Sex: Male
  Weight: 74.8 kg

DRUGS (1)
  1. ACCUTANE [Suspect]
     Indication: ACNE
     Route: 065
     Dates: start: 20040101, end: 20060101

REACTIONS (9)
  - INFLAMMATORY BOWEL DISEASE [None]
  - PERIRECTAL ABSCESS [None]
  - RHEUMATOID ARTHRITIS [None]
  - CROHN'S DISEASE [None]
  - CHAPPED LIPS [None]
  - COLITIS ULCERATIVE [None]
  - CELLULITIS [None]
  - COLONIC FISTULA [None]
  - INTESTINAL OBSTRUCTION [None]
